FAERS Safety Report 4547267-7 (Version None)
Quarter: 2005Q1

REPORT INFORMATION
  Report Type: 
  Country: None (occurrence: None)
  Receive Date: 20050107
  Receipt Date: 20041118
  Transmission Date: 20050727
  Serious: Yes (Other)
  Sender: FDA-Public Use
  Company Number: US-MERCK-0411USA03180

PATIENT
  Age: 68 Year
  Sex: Female
  Weight: 78 kg

DRUGS (16)
  1. VIOXX [Suspect]
     Indication: ARTHRITIS
     Route: 048
     Dates: start: 20001108, end: 20020520
  2. VIOXX [Suspect]
     Indication: FIBROMYALGIA
     Route: 048
     Dates: start: 20001108, end: 20020520
  3. LEVOXYL [Concomitant]
     Route: 048
  4. DICLOFENAC [Concomitant]
     Route: 065
  5. TRAZODONE HYDROCHLORIDE [Concomitant]
     Route: 048
  6. LORAZEPAM [Concomitant]
     Route: 048
  7. AMBIEN [Concomitant]
     Indication: ANXIETY
     Route: 048
  8. MONOPRIL [Concomitant]
     Route: 048
  9. OS-CAL + D [Concomitant]
     Route: 048
  10. DOCUSATE CALCIUM [Concomitant]
     Route: 048
  11. HYDROCHLOROTHIAZIDE [Concomitant]
     Route: 048
  12. ZYRTEC [Concomitant]
     Route: 048
  13. IBUPROFEN [Concomitant]
     Route: 048
  14. NORVASC [Concomitant]
     Route: 065
  15. ULTRAM [Concomitant]
     Route: 048
  16. VITAMINS (UNSPECIFIED) [Concomitant]
     Route: 065

REACTIONS (3)
  - CEREBRAL ATROPHY [None]
  - CEREBROVASCULAR ACCIDENT [None]
  - TRANSIENT ISCHAEMIC ATTACK [None]
